FAERS Safety Report 7156883-8 (Version None)
Quarter: 2010Q4

REPORT INFORMATION
  Report Type: 
  Country: None (occurrence: None)
  Receive Date: 20101214
  Receipt Date: 20101201
  Transmission Date: 20110411
  Serious: Yes (Other)
  Sender: FDA-Public Use
  Company Number: PHHY2010CO81770

PATIENT
  Sex: Male

DRUGS (1)
  1. EXELON [Suspect]
     Indication: DEMENTIA ALZHEIMER'S TYPE
     Dosage: 1 DF, QD
     Route: 062
     Dates: start: 20101127

REACTIONS (5)
  - ASTHENIA [None]
  - DECREASED APPETITE [None]
  - DIABETES MELLITUS [None]
  - SCIATICA [None]
  - SENSORY LOSS [None]
